FAERS Safety Report 5372566-9 (Version None)
Quarter: 2007Q2

REPORT INFORMATION
  Report Type: 
  Country: None (occurrence: None)
  Receive Date: 20070627
  Receipt Date: 20070621
  Transmission Date: 20071010
  Serious: Yes (Hospitalization)
  Sender: FDA-Public Use
  Company Number: US-ABBOTT-07P-163-0367250-00

PATIENT
  Sex: Male
  Weight: 102.3 kg

DRUGS (23)
  1. HUMIRA [Suspect]
     Indication: CROHN'S DISEASE
     Route: 058
     Dates: start: 20070412, end: 20070412
  2. HUMIRA [Suspect]
     Route: 058
     Dates: start: 20070426, end: 20070426
  3. HUMIRA [Suspect]
     Dates: start: 20070501
  4. ALLOPURINOL [Concomitant]
     Indication: DRUG USE FOR UNKNOWN INDICATION
  5. BENACAR [Concomitant]
     Indication: DRUG USE FOR UNKNOWN INDICATION
  6. MESALAZINE [Concomitant]
     Indication: DRUG USE FOR UNKNOWN INDICATION
  7. PANTOPRAZOLE SODIUM [Concomitant]
     Indication: DRUG USE FOR UNKNOWN INDICATION
  8. CANASAL [Concomitant]
     Indication: DRUG USE FOR UNKNOWN INDICATION
  9. CHOLACORT [Concomitant]
     Indication: DRUG USE FOR UNKNOWN INDICATION
  10. MACROGOL [Concomitant]
     Indication: DRUG USE FOR UNKNOWN INDICATION
  11. PREDNISONE TAB [Concomitant]
     Indication: DRUG USE FOR UNKNOWN INDICATION
  12. CARVEDILOL [Concomitant]
     Indication: DRUG USE FOR UNKNOWN INDICATION
  13. FOLIC ACID [Concomitant]
     Indication: DRUG USE FOR UNKNOWN INDICATION
  14. FUROSEMIDE [Concomitant]
     Indication: DRUG USE FOR UNKNOWN INDICATION
  15. AMLODIPINE BESYLATE [Concomitant]
     Indication: DRUG USE FOR UNKNOWN INDICATION
  16. PRENAVIL [Concomitant]
     Indication: DRUG USE FOR UNKNOWN INDICATION
  17. DAILY VITAMINS [Concomitant]
     Indication: DRUG USE FOR UNKNOWN INDICATION
  18. INSULIN LISPRO [Concomitant]
     Indication: DRUG USE FOR UNKNOWN INDICATION
  19. INSULIN GLARGINE [Concomitant]
     Indication: DRUG USE FOR UNKNOWN INDICATION
  20. ACETYLSALICYLIC ACID SRT [Concomitant]
     Indication: DRUG USE FOR UNKNOWN INDICATION
  21. VYTORIN [Concomitant]
     Indication: DRUG USE FOR UNKNOWN INDICATION
  22. KANASA SUPPOSITORY [Concomitant]
     Indication: CONSTIPATION
     Route: 054
     Dates: start: 20061201
  23. CORTAFORAM [Concomitant]
     Indication: DRUG USE FOR UNKNOWN INDICATION

REACTIONS (4)
  - ABDOMINAL PAIN UPPER [None]
  - FULL BLOOD COUNT DECREASED [None]
  - HAEMATOCHEZIA [None]
  - NAUSEA [None]
